FAERS Safety Report 4648406-X (Version None)
Quarter: 2005Q2

REPORT INFORMATION
  Report Type: 
  Country: None (occurrence: None)
  Receive Date: 20050427
  Receipt Date: 20050414
  Transmission Date: 20051028
  Serious: Yes (Other)
  Sender: FDA-Public Use
  Company Number: HQWYE025614APR05

PATIENT
  Age: 80 Year
  Sex: Female

DRUGS (1)
  1. CORDARONE [Suspect]
     Dosage: 200 MG 1X PER 1 DAY, ORAL
     Route: 048

REACTIONS (5)
  - CARDIAC FAILURE [None]
  - PAIN [None]
  - POLYURIA [None]
  - RASH [None]
  - VISUAL DISTURBANCE [None]
